FAERS Safety Report 24440849 (Version 2)
Quarter: 2024Q4

REPORT INFORMATION
  Report Type: Report from Study
  Country: US (occurrence: US)
  Receive Date: 20241016
  Receipt Date: 20241017
  Transmission Date: 20250115
  Serious: No
  Sender: ROCHE
  Company Number: US-ROCHE-3430016

PATIENT
  Age: 6 Year
  Sex: Male
  Weight: 22.8 kg

DRUGS (2)
  1. HEMLIBRA [Suspect]
     Active Substance: EMICIZUMAB-KXWH
     Indication: Factor VIII deficiency
     Dosage: STRENGTH: 105 MG/ 0.7 ML (INJECT 140 MG EVERY 28 DAYS 0.9 ML)
     Route: 058
  2. ELOCTATE [Concomitant]
     Active Substance: EFMOROCTOCOG ALFA
     Indication: Haemorrhage
     Dosage: AS NEEDED FOR BLEEDING

REACTIONS (2)
  - Off label use [Unknown]
  - No adverse event [Unknown]
